FAERS Safety Report 5051509-1 (Version None)
Quarter: 2006Q3

REPORT INFORMATION
  Report Type: 
  Country: None (occurrence: None)
  Receive Date: 20060710
  Receipt Date: 20060627
  Transmission Date: 20061208
  Serious: Yes (Hospitalization)
  Sender: FDA-Public Use
  Company Number: 2006-BP-07412RO

PATIENT
  Sex: Female

DRUGS (1)
  1. METHOTREXATE [Suspect]
     Indication: ECTOPIC PREGNANCY
     Dosage: 20 MG/M2 X 1 DOSE (NR, ONCE) IM
     Route: 030

REACTIONS (3)
  - DIARRHOEA HAEMORRHAGIC [None]
  - MULTI-ORGAN FAILURE [None]
  - ORAL PAIN [None]
